FAERS Safety Report 9972810 (Version 1)
Quarter: 2014Q1

REPORT INFORMATION
  Report Type: Report from Study
  Country: US (occurrence: US)
  Receive Date: 20140306
  Receipt Date: 20140306
  Transmission Date: 20141002
  Serious: Yes (Other)
  Sender: FDA-Public Use
  Company Number: US-ABBVIE-14P-163-1206195-00

PATIENT
  Age: 62 Year
  Sex: Female

DRUGS (5)
  1. HUMIRA [Suspect]
     Indication: PSORIASIS
     Dates: start: 201006
  2. HUMIRA [Suspect]
     Indication: PSORIATIC ARTHROPATHY
     Dosage: ONE DOSE
     Dates: start: 201310, end: 201310
  3. HUMIRA [Suspect]
     Dosage: ONE WEEK AFTER 80 NMG DOSE
     Dates: start: 2013
  4. HORMONE REPLACEMENT [Concomitant]
     Indication: PRODUCT USED FOR UNKNOWN INDICATION
  5. UNNAMED MEDICATION [Concomitant]
     Indication: HORMONE REPLACEMENT THERAPY

REACTIONS (6)
  - Glaucoma [Not Recovered/Not Resolved]
  - Hepatic enzyme increased [Recovering/Resolving]
  - Cataract [Not Recovered/Not Resolved]
  - Headache [Unknown]
  - Pain in jaw [Unknown]
  - Neck pain [Unknown]
